FAERS Safety Report 9819583 (Version 3)
Quarter: 2014Q1

REPORT INFORMATION
  Report Type: Report from Study
  Country: US (occurrence: US)
  Receive Date: 20140115
  Receipt Date: 20140303
  Transmission Date: 20141002
  Serious: No
  Sender: FDA-Public Use
  Company Number: US-ELI_LILLY_AND_COMPANY-US201312000940

PATIENT
  Age: 51 Year
  Sex: Female
  Weight: 99.77 kg

DRUGS (4)
  1. DULOXETINE HYDROCHLORIDE [Suspect]
     Indication: PAIN
     Dosage: UNK UNK, QD
     Route: 048
     Dates: start: 2012, end: 2012
  2. DULOXETINE HYDROCHLORIDE [Suspect]
     Dosage: 60 MG, QD
     Route: 048
     Dates: start: 201311
  3. DULOXETINE HYDROCHLORIDE [Suspect]
     Dosage: 60 MG, QD
     Route: 048
     Dates: start: 201301, end: 201312
  4. TRAMADOL [Concomitant]
     Indication: BACK PAIN
     Dosage: 50 MG, TID
     Route: 065
     Dates: start: 201311

REACTIONS (6)
  - Acne [Recovered/Resolved]
  - Influenza like illness [Recovered/Resolved]
  - Paraesthesia [Recovered/Resolved]
  - Dizziness [Recovered/Resolved]
  - Abnormal sensation in eye [Recovered/Resolved]
  - Fatigue [Recovered/Resolved]
